FAERS Safety Report 9720758 (Version 4)
Quarter: 2014Q1

REPORT INFORMATION
  Report Type: Spontaneous
  Country: NZ (occurrence: NZ)
  Receive Date: 20131129
  Receipt Date: 20140307
  Transmission Date: 20141002
  Serious: Yes (Life-Threatening, Hospitalization, Other)
  Sender: FDA-Public Use
  Company Number: PHHY2013NZ138396

PATIENT
  Age: 79 Year
  Sex: Female
  Weight: 71 kg

DRUGS (13)
  1. ACLASTA [Suspect]
     Indication: OSTEOARTHRITIS
     Dosage: 5 MG / 100 ML
     Route: 042
     Dates: start: 20131119
  2. ACLASTA [Suspect]
     Indication: BONE DISORDER
  3. SERETIDE [Concomitant]
     Indication: ASTHMA
     Dosage: UNK
     Route: 048
  4. VENTOLIN [Concomitant]
     Indication: ASTHMA
     Dosage: UNK UKN, PRN
     Route: 048
  5. VENTOLIN [Concomitant]
     Dosage: UNK 2 PUFF
  6. CHOLECALCIFEROL [Concomitant]
     Dosage: UNK
     Route: 048
  7. ASPIRIN [Concomitant]
     Dosage: 100 MG, QD 1 MONTH
  8. TICAGRELOR [Concomitant]
     Dosage: 90 MG, BID 1 MONTH
  9. ATORVASTATIN [Concomitant]
     Dosage: 80 MG, BID PUFFS, 1 MONTH
  10. QUINAPRIL [Concomitant]
     Dosage: 5 MG, QD 1 MONTH
  11. BISOPROLOL [Concomitant]
     Dosage: 2.5 MG, QD 1 MONTH
  12. FUROSEMIDE [Concomitant]
     Indication: CREPITATIONS
     Dosage: 40 MG, QD 1 MONTH
  13. GTN [Concomitant]
     Dosage: 1 -2 PUFFS, PRN

REACTIONS (16)
  - Myocardial infarction [Recovered/Resolved]
  - Dyspepsia [Unknown]
  - Nausea [Unknown]
  - Musculoskeletal pain [Unknown]
  - Dysphagia [Unknown]
  - Coronary artery stenosis [Unknown]
  - Fall [Unknown]
  - Chest discomfort [Unknown]
  - Coronary artery thrombosis [Unknown]
  - Cardiac disorder [Unknown]
  - Foaming at mouth [Unknown]
  - Dyspnoea [Unknown]
  - Glomerular filtration rate decreased [Unknown]
  - Cough [Unknown]
  - Abdominal pain upper [Unknown]
  - Anxiety [Unknown]
